FAERS Safety Report 16943557 (Version 1)
Quarter: 2019Q4

REPORT INFORMATION
  Report Type: Spontaneous
  Country: JP (occurrence: JP)
  Receive Date: 20191022
  Receipt Date: 20191022
  Transmission Date: 20200122
  Serious: Yes (Other)
  Sender: FDA-Public Use
  Company Number: JP-CHEPLA-C20192460

PATIENT
  Age: 56 Year
  Sex: Female

DRUGS (1)
  1. DENOSINE [GANCICLOVIR] [Suspect]
     Active Substance: GANCICLOVIR
     Route: 041

REACTIONS (1)
  - Urinary retention [Recovered/Resolved]

NARRATIVE: CASE EVENT DATE: 20190927
